FAERS Safety Report 8514819 (Version 3)
Quarter: 2012Q4

REPORT INFORMATION
  Report Type: 
  Country: US (occurrence: US)
  Receive Date: 20120416
  Receipt Date: 20120919
  Transmission Date: 20130627
  Serious: Yes (Hospitalization, Other)
  Sender: FDA-Public Use
  Company Number: US-ALLERGAN-1205080US

PATIENT
  Age: 67 Year
  Sex: Female

DRUGS (9)
  1. REFRESH P.M. [Suspect]
     Indication: DRY EYES
     Dosage: 1 Gtt, qpm
     Route: 047
     Dates: start: 20110505
  2. REFRESH OPTIVE [Suspect]
     Indication: DRY EYES
     Dosage: UNK
     Route: 047
     Dates: start: 20110730
  3. METHOTREXATE [Concomitant]
     Indication: RHEUMATOID ARTHRITIS
     Dosage: 15 mg, q week
     Route: 065
     Dates: start: 20110505, end: 20110628
  4. REMICADE [Concomitant]
     Indication: RHEUMATOID ARTHRITIS
     Dosage: 5 mg/kg, UNK
     Route: 042
  5. THERACODOPHEN LOW 90 [Concomitant]
     Indication: DRUG USE FOR UNKNOWN INDICATION
     Dosage: UNK
     Dates: start: 20110505
  6. LISINOPRIL [Concomitant]
     Indication: HYPERTENSION
     Dosage: 5 mg, UNK
     Route: 048
  7. HYDROCHLOORTHIAZIDE [Concomitant]
     Indication: HYPERTENSION
     Dosage: 25 mg, UNK
     Route: 048
  8. FOLIC ACID [Concomitant]
     Indication: DRUG USE FOR UNKNOWN INDICATION
     Dosage: UNK
     Route: 048
  9. CYMBALTA [Concomitant]
     Indication: DEPRESSION
     Dosage: UNK UNK, bid
     Route: 048

REACTIONS (7)
  - Blindness [Not Recovered/Not Resolved]
  - Injury corneal [Unknown]
  - Eye infection [Unknown]
  - Ulcerative keratitis [Unknown]
  - Eye pain [Unknown]
  - Corneal scar [Not Recovered/Not Resolved]
  - Vision blurred [Unknown]
